FAERS Safety Report 6017188-1 (Version None)
Quarter: 2008Q4

REPORT INFORMATION
  Report Type: 
  Country: None (occurrence: None)
  Receive Date: 20081223
  Receipt Date: 20081212
  Transmission Date: 20090506
  Serious: Yes (Other)
  Sender: FDA-Public Use
  Company Number: CA-JNJFOC-20081203606

PATIENT
  Age: 67 Year
  Sex: Female

DRUGS (23)
  1. REMICADE [Suspect]
     Dosage: 32 ND INFUSION
     Route: 042
  2. REMICADE [Suspect]
     Indication: CROHN'S DISEASE
     Route: 042
  3. CHLORTRIPOLON [Concomitant]
     Indication: PREMEDICATION
     Route: 048
  4. ACETAMINOPHEN [Concomitant]
     Indication: PREMEDICATION
     Route: 048
  5. SOLU-CORTEF [Concomitant]
     Indication: PREMEDICATION
     Route: 042
  6. PREDNISONE TAB [Concomitant]
     Dosage: MORNING OF THE INFUSION
     Route: 048
  7. PREDNISONE TAB [Concomitant]
     Indication: PREMEDICATION
     Dosage: 2 DAYS PRIOR TO INFUSION
     Route: 048
  8. QUESTRAN [Concomitant]
  9. PENTASA [Concomitant]
  10. FLOVENT [Concomitant]
  11. HYDROCHLOROTHIAZIDE [Concomitant]
     Dosage: EXCEPT ON THE DAY OF INFUSION
  12. FOLIC ACID [Concomitant]
     Dosage: EXCEPT ON THE DAY OF INFUSION
  13. AZATHIOPRINE [Concomitant]
     Dosage: EXCEPT ON THE DAY OF INFUSION
  14. VITAMIN B-12 [Concomitant]
     Dosage: EXCEPT ON THE DAY OF INFUSION
  15. VAGIFEM [Concomitant]
     Dosage: EXCEPT ON THE DAY OF INFUSION
  16. ALPRAZOLAM [Concomitant]
     Dosage: EXCEPT ON THE DAY OF INFUSION
  17. PROCTOSEDYL [Concomitant]
     Dosage: EXCEPT ON THE DAY OF INFUSION
  18. VENTOLIN [Concomitant]
     Dosage: EXCEPT ON THE DAY OF INFUSION
  19. ADVIL LIQUI-GELS [Concomitant]
     Dosage: EXCEPT ON THE DAY OF INFUSION
  20. VITA-LUX [Concomitant]
     Indication: MACULAR DEGENERATION
     Dosage: EXCEPT ON THE DAY OF INFUSION
  21. VITA-VIM [Concomitant]
     Dosage: EXCEPT ON THE DAY OF INFUSION
  22. CALCIUM [Concomitant]
     Dosage: EXCEPT ON THE DAY OF INFUSION
  23. CLARITIN [Concomitant]
     Indication: SINUSITIS
     Dosage: EXCEPT ON THE DAY OF INFUSION

REACTIONS (3)
  - BLOOD PRESSURE INCREASED [None]
  - MACULAR DEGENERATION [None]
  - RASH [None]
